FAERS Safety Report 4809023-1 (Version None)
Quarter: 2005Q4

REPORT INFORMATION
  Report Type: 
  Country: None (occurrence: None)
  Receive Date: 20051024
  Receipt Date: 20051012
  Transmission Date: 20060501
  Serious: Yes (Hospitalization, Other)
  Sender: FDA-Public Use
  Company Number: HQWYE277319JUL05

PATIENT
  Age: 56 Year
  Sex: Male

DRUGS (6)
  1. CORDARONE [Suspect]
     Indication: ATRIAL FIBRILLATION
     Dosage: 400 MG 1X PER 1 DAY, ORAL
     Route: 048
     Dates: start: 20050608, end: 20050614
  2. DIGOXIN [Suspect]
     Indication: ATRIAL FIBRILLATION
     Dosage: 0.25 MG 1X PER 1 DAY, ORAL
     Route: 048
     Dates: start: 20050608, end: 20050614
  3. RULID (ROXITHROMYCIN, ) [Suspect]
     Dosage: 150 MG 2X PER 1 DAY, ORAL
     Route: 048
     Dates: start: 20050611, end: 20050614
  4. VFEND [Suspect]
     Indication: ASPERGILLOSIS
     Dosage: 200 MG 2X PER 1 DAY,ORAL
     Route: 048
     Dates: start: 20050609, end: 20050614
  5. LEVOTHYROXINE SODIUM [Concomitant]
  6. AMOXICILLIN TRIHYDRATE [Concomitant]

REACTIONS (4)
  - BRADYCARDIA [None]
  - ELECTROCARDIOGRAM QT PROLONGED [None]
  - HYPOKALAEMIA [None]
  - TORSADE DE POINTES [None]
